FAERS Safety Report 5892808-0 (Version None)
Quarter: 2008Q3

REPORT INFORMATION
  Report Type: 
  Country: None (occurrence: None)
  Receive Date: 20080923
  Receipt Date: 20080917
  Transmission Date: 20090109
  Serious: Yes (Hospitalization)
  Sender: FDA-Public Use
  Company Number: FR-BAXTER-2008BH001594

PATIENT
  Age: 41 Year
  Sex: Female

DRUGS (4)
  1. GAMMAGARD S/D [Suspect]
     Indication: IMMUNODEFICIENCY COMMON VARIABLE
     Route: 042
     Dates: start: 20080130, end: 20080130
  2. PULMICORT-100 [Concomitant]
     Indication: ASTHMA
  3. FORADIL [Concomitant]
     Indication: ASTHMA
  4. BRICANYL [Concomitant]
     Indication: ASTHMA

REACTIONS (1)
  - ARTHRALGIA [None]
